FAERS Safety Report 12413619 (Version 4)
Quarter: 2016Q4

REPORT INFORMATION
  Report Type: Report from Study
  Country: US (occurrence: US)
  Receive Date: 20160527
  Receipt Date: 20161208
  Transmission Date: 20170207
  Serious: No
  Sender: FDA-Public Use
  Company Number: US-AMGEN-USASL2016055884

PATIENT
  Age: 23 Year
  Sex: Female
  Weight: 92.29 kg

DRUGS (2)
  1. BLINCYTO [Suspect]
     Active Substance: BLINATUMOMAB
     Indication: ACUTE LYMPHOCYTIC LEUKAEMIA
     Dosage: 9 MUG, QD
     Route: 042
     Dates: start: 20160320
  2. BLINCYTO [Suspect]
     Active Substance: BLINATUMOMAB
     Dosage: 28 MUG, QD
     Route: 042
     Dates: end: 20160413

REACTIONS (4)
  - Somatic symptom disorder [Unknown]
  - Adverse event [Unknown]
  - Pain [Unknown]
  - Mental disorder [Unknown]

NARRATIVE: CASE EVENT DATE: 20160405
